FAERS Safety Report 8992030 (Version 2)
Quarter: 2013Q1

REPORT INFORMATION
  Report Type: Spontaneous
  Country: AR (occurrence: AR)
  Receive Date: 20121231
  Receipt Date: 20130221
  Transmission Date: 20140127
  Serious: Yes (Hospitalization, Other)
  Sender: FDA-Public Use
  Company Number: PHHY2012AR121027

PATIENT
  Age: 79 Year
  Sex: Female

DRUGS (2)
  1. EXFORGE [Suspect]
     Indication: HYPERTENSION
     Dosage: 1 DF, (VALSARTAN 80 MG, AMLO 5 MG) DAILY
     Route: 048
     Dates: start: 2010, end: 20121205
  2. EXFORGE [Suspect]
     Dosage: 1 DF, (VALSARTAN 80 MG, AMLO 5 MG) DAILY
     Route: 048

REACTIONS (3)
  - Joint dislocation [Recovering/Resolving]
  - Gait disturbance [Recovering/Resolving]
  - Chronic obstructive pulmonary disease [Recovering/Resolving]
